FAERS Safety Report 5447542-8 (Version None)
Quarter: 2007Q3

REPORT INFORMATION
  Report Type: 
  Country: None (occurrence: None)
  Receive Date: 20070910
  Receipt Date: 20070910
  Transmission Date: 20080115
  Serious: Yes (Hospitalization)
  Sender: FDA-Public Use
  Company Number: D0054513A

PATIENT
  Age: 45 Year
  Sex: Female
  Weight: 73 kg

DRUGS (4)
  1. ELONTRIL [Suspect]
     Dosage: 150MG SEE DOSAGE TEXT
     Route: 048
     Dates: start: 20070909, end: 20070909
  2. DOXYLAMINE [Suspect]
     Dosage: 25MG SEE DOSAGE TEXT
     Route: 048
     Dates: start: 20070909, end: 20070909
  3. TRIMIPRAMINE MESILATE [Suspect]
     Dosage: 30ML PER DAY
     Route: 048
     Dates: start: 20070909, end: 20070909
  4. ZOPICLON [Suspect]
     Dosage: 7.5MG SEE DOSAGE TEXT
     Route: 048
     Dates: start: 20070909, end: 20070909

REACTIONS (4)
  - COMA [None]
  - INTENTIONAL OVERDOSE [None]
  - SUICIDE ATTEMPT [None]
  - VOMITING [None]
